APPROVED DRUG PRODUCT: IRINOTECAN HYDROCHLORIDE
Active Ingredient: IRINOTECAN HYDROCHLORIDE
Strength: 300MG/15ML (20MG/ML)
Dosage Form/Route: INJECTABLE;INJECTION
Application: A203380 | Product #003 | TE Code: AP
Applicant: QILU PHARMACEUTICAL HAINAN CO LTD
Approved: May 3, 2016 | RLD: No | RS: No | Type: RX